FAERS Safety Report 12878793 (Version 1)
Quarter: 2016Q4

REPORT INFORMATION
  Report Type: Spontaneous
  Country: FR (occurrence: FR)
  Receive Date: 20161024
  Receipt Date: 20161024
  Transmission Date: 20170207
  Serious: Yes (Death)
  Sender: FDA-Public Use
  Company Number: FR-SA-2016SA192990

PATIENT
  Age: 59 Year
  Sex: Male

DRUGS (5)
  1. AMLODIPINE [Suspect]
     Active Substance: AMLODIPINE BESYLATE
     Route: 048
     Dates: start: 20160719, end: 20160930
  2. VORICONAZOLE. [Suspect]
     Active Substance: VORICONAZOLE
     Route: 048
     Dates: start: 20160309
  3. DAONIL [Suspect]
     Active Substance: GLYBURIDE
     Route: 048
     Dates: start: 20160704, end: 20160830
  4. SERTRALINE [Suspect]
     Active Substance: SERTRALINE HYDROCHLORIDE
     Route: 048
     Dates: start: 20160415, end: 20160930
  5. MIRTAZAPINE. [Suspect]
     Active Substance: MIRTAZAPINE
     Route: 048
     Dates: start: 20160712, end: 20160830

REACTIONS (4)
  - Hepatic encephalopathy [Fatal]
  - Hepatitis fulminant [Fatal]
  - Acute kidney injury [Fatal]
  - Multiple organ dysfunction syndrome [Fatal]

NARRATIVE: CASE EVENT DATE: 20160830
